FAERS Safety Report 4719190-6 (Version None)
Quarter: 2005Q3

REPORT INFORMATION
  Report Type: 
  Country: None (occurrence: None)
  Receive Date: 20050720
  Receipt Date: 20050713
  Transmission Date: 20060218
  Serious: Yes (Life-Threatening)
  Sender: FDA-Public Use
  Company Number: DE_050716343

PATIENT
  Age: 34 Year
  Sex: Female

DRUGS (1)
  1. XIGRIS [Suspect]
     Dosage: 24 UG/KG/HR
     Dates: start: 20050629

REACTIONS (2)
  - LUNG DISORDER [None]
  - PLATELET COUNT DECREASED [None]
